FAERS Safety Report 7351586-9 (Version None)
Quarter: 2011Q1

REPORT INFORMATION
  Report Type: 
  Country: None (occurrence: None)
  Receive Date: 20110314
  Receipt Date: 20110304
  Transmission Date: 20110831
  Serious: Yes (Death, Hospitalization)
  Sender: FDA-Public Use
  Company Number: CN-BRISTOL-MYERS SQUIBB COMPANY-15575103

PATIENT
  Age: 82 Year
  Sex: Female

DRUGS (3)
  1. ISOSORBIDE MONONITRATE [Suspect]
  2. PRAVASTATIN SODIUM [Suspect]
  3. CLOPIDOGREL BISULFATE [Suspect]
     Route: 048

REACTIONS (2)
  - SEPTIC SHOCK [None]
  - PANCYTOPENIA [None]
